FAERS Safety Report 15001959 (Version 3)
Quarter: 2019Q1

REPORT INFORMATION
  Report Type: Report from Study
  Country: FR (occurrence: FR)
  Receive Date: 20180612
  Receipt Date: 20190117
  Transmission Date: 20190417
  Serious: Yes (Hospitalization, Other)
  Sender: FDA-Public Use
  Company Number: FR-PFIZER INC-2018230830

PATIENT
  Age: 56 Year
  Sex: Male
  Weight: 113 kg

DRUGS (32)
  1. TARGOCID [Suspect]
     Active Substance: TEICOPLANIN
     Indication: LIVER ABSCESS
     Dosage: 1416 MG, 1X/DAY
     Route: 042
     Dates: start: 20171106, end: 20171106
  2. METRONIDAZOLE. [Suspect]
     Active Substance: METRONIDAZOLE
     Dosage: UNK
     Dates: start: 20171023, end: 20171030
  3. VANCOMYCIN [Suspect]
     Active Substance: VANCOMYCIN
     Dosage: UNK
     Route: 065
     Dates: start: 20171011, end: 20171019
  4. NICARDIPINE [Concomitant]
     Active Substance: NICARDIPINE
     Dosage: UNK
     Route: 065
     Dates: start: 20171008, end: 20171010
  5. ESCITALOPRAM [Concomitant]
     Active Substance: ESCITALOPRAM OXALATE
     Dosage: UNK
     Dates: start: 20171110
  6. SITAGLIPTIN [Concomitant]
     Active Substance: SITAGLIPTIN
     Dosage: UNK
     Dates: start: 20171110, end: 20171211
  7. MEROPENEM. [Concomitant]
     Active Substance: MEROPENEM
     Dosage: UNK
     Route: 065
     Dates: start: 20171124, end: 20171128
  8. ZOPICLONE [Concomitant]
     Active Substance: ZOPICLONE
     Dosage: UNK
     Route: 065
     Dates: start: 20171017, end: 20171023
  9. NORADRENALINE [Concomitant]
     Active Substance: NOREPINEPHRINE
     Dosage: UNK
     Route: 065
     Dates: start: 20171124, end: 20171126
  10. CALCIPARINE [Concomitant]
     Active Substance: HEPARIN CALCIUM
     Dosage: UNK
     Route: 065
     Dates: start: 20171006, end: 20171007
  11. TRIMEBUTINE [Concomitant]
     Active Substance: TRIMEBUTINE
     Dosage: UNK
     Route: 065
     Dates: start: 20171006, end: 20171012
  12. METFORMIN [Concomitant]
     Active Substance: METFORMIN HYDROCHLORIDE
     Dosage: UNK
     Dates: start: 20171110, end: 20171211
  13. TAZOCILLINE [Suspect]
     Active Substance: PIPERACILLIN SODIUM\TAZOBACTAM SODIUM
     Dosage: UNK
     Route: 065
     Dates: start: 20171004, end: 20171007
  14. TARGOCID [Suspect]
     Active Substance: TEICOPLANIN
     Indication: PERITONEAL DISORDER
     Dosage: UNK UNK, 2X/DAY (EVERY 12 HOURS)
     Route: 042
     Dates: start: 20171107, end: 20171107
  15. TARGOCID [Suspect]
     Active Substance: TEICOPLANIN
     Dosage: 1400 MG, 2X/DAY (EVERY 12 HOURS)
     Route: 042
     Dates: start: 20171108, end: 20171108
  16. METRONIDAZOLE. [Suspect]
     Active Substance: METRONIDAZOLE
     Dosage: UNK
     Dates: start: 20171007, end: 20171017
  17. CEFOTAXIME SODIUM [Suspect]
     Active Substance: CEFOTAXIME SODIUM
     Dosage: UNK
     Route: 065
     Dates: start: 20171014, end: 20171030
  18. NICARDIPINE [Concomitant]
     Active Substance: NICARDIPINE
     Dosage: UNK
     Route: 065
     Dates: start: 20171017, end: 20171020
  19. PANTOPRAZOLE [Concomitant]
     Active Substance: PANTOPRAZOLE
     Dosage: UNK
     Route: 065
  20. DAPTOMYCIN. [Concomitant]
     Active Substance: DAPTOMYCIN
     Dosage: UNK
     Route: 065
     Dates: start: 20171124, end: 20171125
  21. AMBISOME [Suspect]
     Active Substance: AMPHOTERICIN B
     Dosage: UNK
     Route: 065
     Dates: start: 20171110, end: 20171122
  22. CEFEPIME [Concomitant]
     Active Substance: CEFEPIME HYDROCHLORIDE
     Dosage: UNK
     Route: 065
     Dates: start: 20171007, end: 20171014
  23. TRIATEC [Concomitant]
     Dosage: UNK
     Route: 065
     Dates: start: 20171020
  24. LANTUS [Concomitant]
     Active Substance: INSULIN GLARGINE
     Dosage: UNK
     Route: 065
  25. LINEZOLID. [Concomitant]
     Active Substance: LINEZOLID
     Dosage: UNK
     Route: 065
     Dates: start: 20171006, end: 20171011
  26. TAZOCILLINE [Suspect]
     Active Substance: PIPERACILLIN SODIUM\TAZOBACTAM SODIUM
     Dosage: UNK
     Route: 065
     Dates: start: 20171006, end: 20171006
  27. CEFEPIME [Concomitant]
     Active Substance: CEFEPIME HYDROCHLORIDE
     Dosage: UNK
     Dates: start: 20171128, end: 20171211
  28. TARGOCID [Suspect]
     Active Substance: TEICOPLANIN
     Dosage: 1400 MG, 1X/DAY
     Route: 042
     Dates: start: 20171109, end: 20171115
  29. URAPIDIL [Concomitant]
     Active Substance: URAPIDIL
     Dosage: UNK
     Route: 065
     Dates: start: 20171019, end: 20171024
  30. NEFOPAM [Concomitant]
     Active Substance: NEFOPAM
     Dosage: UNK
     Route: 065
     Dates: start: 20171006, end: 20171012
  31. ENOXAPARIN [Concomitant]
     Active Substance: ENOXAPARIN
     Dosage: UNK
     Route: 065
     Dates: start: 20171008
  32. BISOPROLOL [Concomitant]
     Active Substance: BISOPROLOL
     Dosage: UNK
     Dates: start: 20171110, end: 20171211

REACTIONS (6)
  - Respiratory gas exchange disorder [Recovered/Resolved]
  - Intra-abdominal fluid collection [Recovered/Resolved]
  - Oedema [Recovered/Resolved]
  - Acute kidney injury [Recovered/Resolved]
  - Systemic candida [Recovered/Resolved]
  - Anaemia [Recovered/Resolved]

NARRATIVE: CASE EVENT DATE: 20171107
